FAERS Safety Report 25502035 (Version 2)
Quarter: 2025Q3

REPORT INFORMATION
  Report Type: Spontaneous
  Country: JP (occurrence: JP)
  Receive Date: 20250702
  Receipt Date: 20250704
  Transmission Date: 20251021
  Serious: Yes (Death, Other)
  Sender: ARGENX BVBA
  Company Number: JP-ARGENX-2025-ARGX-JP008579

PATIENT

DRUGS (1)
  1. VYVGART [Suspect]
     Active Substance: EFGARTIGIMOD ALFA-FCAB
     Indication: Myasthenia gravis
     Route: 042
     Dates: end: 20250624

REACTIONS (3)
  - Asphyxia [Fatal]
  - Myasthenia gravis [Fatal]
  - Tracheal stenosis [Fatal]

NARRATIVE: CASE EVENT DATE: 20250629
